FAERS Safety Report 5223712-9 (Version None)
Quarter: 2007Q1

REPORT INFORMATION
  Report Type: 
  Country: None (occurrence: None)
  Receive Date: 20070126
  Receipt Date: 20070112
  Transmission Date: 20070707
  Serious: Yes (Other)
  Sender: FDA-Public Use
  Company Number: 8021397

PATIENT
  Age: 34 Year
  Sex: Female

DRUGS (2)
  1. KEPPRA [Suspect]
     Indication: EPILEPSY
     Dosage: 500 MG 2/D PO
     Route: 048
  2. TRILEPTAL [Suspect]
     Indication: EPILEPSY
     Dosage: PO
     Route: 048

REACTIONS (3)
  - CAESAREAN SECTION [None]
  - PREMATURE BABY [None]
  - RETROPLACENTAL HAEMATOMA [None]
